FAERS Safety Report 6279577-X (Version None)
Quarter: 2009Q3

REPORT INFORMATION
  Report Type: 
  Country: None (occurrence: None)
  Receive Date: 20090723
  Receipt Date: 20090715
  Transmission Date: 20100115
  Serious: Yes (Hospitalization)
  Sender: FDA-Public Use
  Company Number: A0797134A

PATIENT
  Age: 63 Year
  Sex: Female

DRUGS (2)
  1. PAXIL [Suspect]
     Indication: DEPRESSION
     Dosage: 20MG PER DAY
     Route: 048
     Dates: start: 19900101, end: 20070101
  2. MOTRIN [Concomitant]

REACTIONS (9)
  - ACTIVITIES OF DAILY LIVING IMPAIRED [None]
  - DEPRESSION [None]
  - DIZZINESS [None]
  - DRY MOUTH [None]
  - DYSPHONIA [None]
  - HYPERHIDROSIS [None]
  - SUICIDAL IDEATION [None]
  - TINNITUS [None]
  - TREMOR [None]
